FAERS Safety Report 13743526 (Version 2)
Quarter: 2025Q4

REPORT INFORMATION
  Report Type: Spontaneous
  Country: EU (occurrence: EU)
  Receive Date: 20170711
  Receipt Date: 20251107
  Transmission Date: 20260118
  Serious: Yes (Death, Other)
  Sender: VALIDUS
  Company Number: EU-VALIDUS PHARMACEUTICALS LLC-SE-2017VAL001000

PATIENT
  Age: 26 Year
  Sex: Male

DRUGS (13)
  1. CARBAMAZEPINE [Suspect]
     Active Substance: CARBAMAZEPINE
     Indication: Overdose
     Dosage: 14 MICROGRAM PER GRAM
     Route: 065
  2. TRIMEPRAZINE [Suspect]
     Active Substance: TRIMEPRAZINE
     Indication: Product used for unknown indication
     Dosage: UNK
     Route: 065
  3. ALPRAZOLAM [Suspect]
     Active Substance: ALPRAZOLAM
     Indication: Product used for unknown indication
     Dosage: UNK
     Route: 065
  4. BUPRENORPHINE [Suspect]
     Active Substance: BUPRENORPHINE
     Indication: Product used for unknown indication
     Dosage: UNK
     Route: 065
  5. CANNABIS SATIVA FLOWERING TOP [Suspect]
     Active Substance: CANNABIS SATIVA FLOWERING TOP
     Indication: Product used for unknown indication
     Dosage: UNK
     Route: 065
  6. FENTANYL [Suspect]
     Active Substance: FENTANYL
     Indication: Product used for unknown indication
     Dosage: UNK
     Route: 065
  7. GABAPENTIN [Suspect]
     Active Substance: GABAPENTIN
     Indication: Product used for unknown indication
     Dosage: UNK
     Route: 065
  8. METHYLPHENIDATE HYDROCHLORIDE [Suspect]
     Active Substance: METHYLPHENIDATE HYDROCHLORIDE
     Indication: Product used for unknown indication
     Dosage: 0.004 MICROGRAM PER GRAM
     Route: 065
  9. MIRTAZAPINE [Suspect]
     Active Substance: MIRTAZAPINE
     Indication: Product used for unknown indication
     Dosage: UNK
     Route: 065
  10. PREGABALIN [Suspect]
     Active Substance: PREGABALIN
     Indication: Product used for unknown indication
     Dosage: UNK
     Route: 065
  11. REMERON [Suspect]
     Active Substance: MIRTAZAPINE
     Indication: Product used for unknown indication
     Dosage: UNK
     Route: 065
  12. CLONAZEPAM [Concomitant]
     Active Substance: CLONAZEPAM
     Indication: Product used for unknown indication
     Dosage: UNK
     Route: 065
  13. ZOPICLONE [Concomitant]
     Active Substance: ZOPICLONE
     Indication: Product used for unknown indication
     Dosage: UNK
     Route: 065

REACTIONS (9)
  - Toxicity to various agents [Fatal]
  - Accidental overdose [Fatal]
  - Drug interaction [Fatal]
  - Brain oedema [Fatal]
  - Pulmonary oedema [Fatal]
  - Foaming at mouth [Fatal]
  - Obstructive airways disorder [Fatal]
  - Drug abuse [Fatal]
  - Drug tolerance [Fatal]
